FAERS Safety Report 21208675 (Version 2)
Quarter: 2022Q3

REPORT INFORMATION
  Report Type: Spontaneous
  Country: GB (occurrence: GB)
  Receive Date: 20220812
  Receipt Date: 20220901
  Transmission Date: 20221027
  Serious: Yes (Other)
  Sender: FDA-Public Use
  Company Number: GB-HAMELN-2022HAM000291

PATIENT
  Age: 40 Year
  Sex: Male

DRUGS (6)
  1. PROPOFOL [Suspect]
     Active Substance: PROPOFOL
     Indication: Sedation
     Dosage: 50 MG DILUTED TO 10 ML. FIRST DOSE
     Route: 042
  2. PROPOFOL [Suspect]
     Active Substance: PROPOFOL
     Dosage: 50 MG. SECOND DOSE
     Route: 042
  3. MIDAZOLAM [Suspect]
     Active Substance: MIDAZOLAM
     Indication: Sedation
     Dosage: 1 MG
     Route: 042
  4. MIDAZOLAM [Suspect]
     Active Substance: MIDAZOLAM
     Indication: Anxiety
  5. FENTANYL [Suspect]
     Active Substance: FENTANYL
     Indication: Sedation
     Dosage: 50 MCG DILUTED IN 10 ML. FIRST DOSE
     Route: 042
  6. FENTANYL [Suspect]
     Active Substance: FENTANYL
     Dosage: 50 MCG. SECOND DOSE
     Route: 042

REACTIONS (3)
  - Product use in unapproved indication [Unknown]
  - Cardiac arrest [Unknown]
  - Injection site pain [Unknown]
